FAERS Safety Report 23403167 (Version 1)
Quarter: 2024Q1

REPORT INFORMATION
  Report Type: Spontaneous
  Country: US (occurrence: US)
  Receive Date: 20240116
  Receipt Date: 20240116
  Transmission Date: 20240410
  Serious: No
  Sender: FDA-Public Use
  Company Number: US-SANOFI-01900697

PATIENT
  Sex: Male

DRUGS (1)
  1. DUPIXENT [Suspect]
     Active Substance: DUPILUMAB
     Dosage: UNK
     Dates: start: 2023

REACTIONS (4)
  - Malaise [Unknown]
  - Abdominal pain upper [Unknown]
  - Condition aggravated [Unknown]
  - Nasal septal operation [Unknown]

NARRATIVE: CASE EVENT DATE: 20230101
